FAERS Safety Report 9370023 (Version 1)
Quarter: 2013Q2

REPORT INFORMATION
  Report Type: Spontaneous
  Country: US (occurrence: US)
  Receive Date: 20130626
  Receipt Date: 20130626
  Transmission Date: 20140414
  Serious: Yes (Other)
  Sender: FDA-Public Use
  Company Number: US-TARO-2013P1009101

PATIENT
  Age: 83 Year
  Sex: Male
  Weight: 103.87 kg

DRUGS (8)
  1. WARFARIN SODIUM TABLETS USP 2.5MG [Suspect]
     Dates: start: 1998, end: 2000
  2. WARFARIN SODIUM TABLETS USP 2.5MG [Suspect]
     Dates: start: 2008
  3. WARFARIN SODIUM TABLETS USP 2.5MG [Suspect]
     Route: 048
     Dates: start: 20130602, end: 20130613
  4. WARFARIN SODIUM TABLETS USP 2.5MG [Suspect]
     Route: 048
     Dates: start: 20130602, end: 20130613
  5. ADVAIR 150 [Concomitant]
     Route: 055
  6. ATORVASTATIN [Concomitant]
  7. UNSPECIFIED ALLERGY PILL [Concomitant]
  8. MUCINEX [Concomitant]

REACTIONS (4)
  - International normalised ratio increased [Recovered/Resolved]
  - Influenza [Recovered/Resolved]
  - Product substitution issue [Unknown]
  - Pneumonia [Recovered/Resolved]
